FAERS Safety Report 4905678-1 (Version None)
Quarter: 2006Q1

REPORT INFORMATION
  Report Type: 
  Country: None (occurrence: None)
  Receive Date: 20060203
  Receipt Date: 20060127
  Transmission Date: 20060701
  Serious: Yes (Other)
  Sender: FDA-Public Use
  Company Number: 2006013857

PATIENT
  Age: 66 Year
  Sex: Female
  Weight: 54.4316 kg

DRUGS (5)
  1. XANAX [Suspect]
     Indication: ILL-DEFINED DISORDER
  2. ALPRAZOLAM [Suspect]
     Indication: ILL-DEFINED DISORDER
  3. NEURONTIN [Concomitant]
  4. DEPAKOTE (VALPROAE SEMISODIUM) [Concomitant]
  5. PREMARIN [Concomitant]

REACTIONS (4)
  - BREAST CANCER FEMALE [None]
  - RASH GENERALISED [None]
  - RASH PRURITIC [None]
  - REACTION TO DRUG EXCIPIENTS [None]
